FAERS Safety Report 10467259 (Version 3)
Quarter: 2014Q4

REPORT INFORMATION
  Report Type: Report from Study
  Country: US (occurrence: US)
  Receive Date: 20140922
  Receipt Date: 20141111
  Transmission Date: 20150528
  Serious: Yes (Hospitalization)
  Sender: FDA-Public Use
  Company Number: US-MUNDIPHARMA DS AND PHARMACOVIGILANCE-USA-2014-0117486

PATIENT
  Sex: Male

DRUGS (3)
  1. OXYCONTIN [Suspect]
     Active Substance: OXYCODONE HYDROCHLORIDE
     Indication: OSTEOARTHRITIS
     Dosage: 240 MG, UNK
     Route: 048
     Dates: start: 20140723
  2. OXYCONTIN [Suspect]
     Active Substance: OXYCODONE HYDROCHLORIDE
     Indication: MULTIPLE SCLEROSIS
     Dosage: 160 MG, AM
     Route: 048
     Dates: start: 20140723
  3. OXYCONTIN [Suspect]
     Active Substance: OXYCODONE HYDROCHLORIDE
     Indication: PLASMA CELL MYELOMA

REACTIONS (6)
  - Cardiac disorder [Unknown]
  - Hypotension [Unknown]
  - Pulmonary embolism [Unknown]
  - Fall [Unknown]
  - Dyspnoea [Unknown]
  - Diarrhoea [Unknown]
